FAERS Safety Report 4836843-X (Version None)
Quarter: 2005Q4

REPORT INFORMATION
  Report Type: 
  Country: None (occurrence: None)
  Receive Date: 20051121
  Receipt Date: 20051110
  Transmission Date: 20060501
  Serious: Yes (Other)
  Sender: FDA-Public Use
  Company Number: 230001L05MEX

PATIENT
  Age: 47 Year
  Sex: Female

DRUGS (1)
  1. INTERFERON BETA (INTERFERON BETA) [Suspect]
     Indication: RELAPSING-REMITTING MULTIPLE SCLEROSIS

REACTIONS (1)
  - SYSTEMIC LUPUS ERYTHEMATOSUS [None]
